FAERS Safety Report 7570132-8 (Version None)
Quarter: 2011Q2

REPORT INFORMATION
  Report Type: 
  Country: None (occurrence: None)
  Receive Date: 20110620
  Receipt Date: 20110610
  Transmission Date: 20111010
  Serious: Yes (Other)
  Sender: FDA-Public Use
  Company Number: ACO_25140_2011

PATIENT
  Age: 75 Year
  Sex: Female
  Weight: 68 kg

DRUGS (7)
  1. KEPPRA [Concomitant]
  2. ATENOLOL [Concomitant]
  3. AMPYRA [Suspect]
     Indication: MULTIPLE SCLEROSIS
     Dosage: 10 MG, BID, ORAL
     Route: 048
     Dates: start: 20110501, end: 20110611
  4. EVISTA (RALOXIFENE HYDROCHLLRIDE) [Concomitant]
  5. ASPIRIN [Concomitant]
  6. AMANTACDINE (AMANTADINE) [Concomitant]
  7. GILENYA (FINGOLIMOD HYDROCHLORIDE) [Concomitant]

REACTIONS (4)
  - DRUG INEFFECTIVE [None]
  - CONVULSION [None]
  - ASTHENIA [None]
  - COGNITIVE DISORDER [None]
